FAERS Safety Report 20166791 (Version 1)
Quarter: 2021Q4

REPORT INFORMATION
  Report Type: Spontaneous
  Country: NZ (occurrence: NZ)
  Receive Date: 20211209
  Receipt Date: 20211209
  Transmission Date: 20220303
  Serious: Yes (Other)
  Sender: FDA-Public Use
  Company Number: NZ-009507513-2112NZL002125

PATIENT
  Age: 58 Year
  Sex: Male

DRUGS (1)
  1. KEYTRUDA [Suspect]
     Active Substance: PEMBROLIZUMAB
     Indication: Lung squamous cell carcinoma stage IV
     Dosage: UNK
     Dates: start: 2019

REACTIONS (3)
  - Spinal operation [Unknown]
  - Malignant neoplasm progression [Unknown]
  - Illness [Unknown]

NARRATIVE: CASE EVENT DATE: 20191201
